FAERS Safety Report 7384866-1 (Version None)
Quarter: 2011Q1

REPORT INFORMATION
  Report Type: 
  Country: None (occurrence: None)
  Receive Date: 20110330
  Receipt Date: 20110323
  Transmission Date: 20110831
  Serious: Yes (Death)
  Sender: FDA-Public Use
  Company Number: US-PFIZER INC-2011066867

PATIENT
  Sex: Male

DRUGS (1)
  1. RAPAMUNE [Suspect]
     Indication: LIVER DISORDER
     Dosage: 4 MG, 1X/DAY
     Route: 048
     Dates: start: 20100901, end: 20110312

REACTIONS (1)
  - DEATH [None]
